FAERS Safety Report 4782848-7 (Version None)
Quarter: 2005Q3

REPORT INFORMATION
  Report Type: 
  Country: None (occurrence: None)
  Receive Date: 20050929
  Receipt Date: 20050810
  Transmission Date: 20060218
  Serious: Yes (Other)
  Sender: FDA-Public Use
  Company Number: PHEH2005US08950

PATIENT
  Age: 49 Year
  Sex: Female

DRUGS (3)
  1. LAMISIL [Suspect]
     Indication: NAIL TINEA
     Dosage: UNK, QD
     Route: 048
     Dates: start: 20020101
  2. LAMISIL [Suspect]
     Dosage: UNK, QD
     Route: 048
     Dates: start: 20050101
  3. SINGULAIR [Concomitant]

REACTIONS (4)
  - GALLBLADDER DISORDER [None]
  - LIVER DISORDER [None]
  - NEPHROLITHIASIS [None]
  - VASCULAR ANOMALY [None]
